FAERS Safety Report 8232038-0 (Version None)
Quarter: 2012Q1

REPORT INFORMATION
  Report Type: 
  Country: None (occurrence: None)
  Receive Date: 20120323
  Receipt Date: 20120313
  Transmission Date: 20120608
  Serious: Yes (Other)
  Sender: FDA-Public Use
  Company Number: US-CELGENEUS-163-22393-12031526

PATIENT
  Sex: Male
  Weight: 99.4 kg

DRUGS (1)
  1. ISTODAX [Suspect]
     Route: 050
     Dates: start: 20120311

REACTIONS (2)
  - INFUSION SITE VESICLES [None]
  - INFUSION SITE EXTRAVASATION [None]
